FAERS Safety Report 14857897 (Version 1)
Quarter: 2018Q2

REPORT INFORMATION
  Report Type: Report from Study
  Country: US (occurrence: ZA)
  Receive Date: 20180508
  Receipt Date: 20180508
  Transmission Date: 20180711
  Serious: Yes (Other)
  Sender: FDA-Public Use
  Company Number: US-CIPLA (EU) LIMITED-2018ZA17267

PATIENT

DRUGS (1)
  1. EMTRICITABINE/TENOFOVIR [Suspect]
     Active Substance: EMTRICITABINE\TENOFOVIR
     Indication: PROPHYLAXIS AGAINST HIV INFECTION
     Dosage: 300 MG TDF/200 MG FTC TABLET
     Route: 048

REACTIONS (2)
  - Treatment failure [Unknown]
  - Treatment noncompliance [Unknown]
